FAERS Safety Report 24700542 (Version 1)
Quarter: 2024Q4

REPORT INFORMATION
  Report Type: Spontaneous
  Country: GB (occurrence: GB)
  Receive Date: 20241205
  Receipt Date: 20241205
  Transmission Date: 20250115
  Serious: Yes (Hospitalization, Other)
  Sender: NOVARTIS
  Company Number: GB-002147023-NVSC2024GB231646

PATIENT

DRUGS (1)
  1. GILENYA [Suspect]
     Active Substance: FINGOLIMOD HYDROCHLORIDE
     Indication: Multiple sclerosis
     Dosage: UNK
     Route: 065
     Dates: start: 2014, end: 2014

REACTIONS (6)
  - Pneumonia [Unknown]
  - Alopecia [Unknown]
  - Pyelonephritis [Unknown]
  - Tinea versicolour [Unknown]
  - Multiple sclerosis [Unknown]
  - Spondylitis [Unknown]

NARRATIVE: CASE EVENT DATE: 20140101
